FAERS Safety Report 5753168-9 (Version None)
Quarter: 2008Q2

REPORT INFORMATION
  Report Type: 
  Country: None (occurrence: None)
  Receive Date: 20080530
  Receipt Date: 20080527
  Transmission Date: 20081010
  Serious: Yes (Other)
  Sender: FDA-Public Use
  Company Number: FR-JNJFOC-20080505491

PATIENT
  Sex: Male

DRUGS (1)
  1. EPITOMAX [Suspect]
     Indication: MIGRAINE
     Route: 048

REACTIONS (3)
  - ABDOMINAL PAIN [None]
  - DIARRHOEA [None]
  - RECTAL HAEMORRHAGE [None]
